FAERS Safety Report 9757231 (Version 1)
Quarter: 2013Q4

REPORT INFORMATION
  Report Type: Spontaneous
  Country: TN (occurrence: TN)
  Receive Date: 20131213
  Receipt Date: 20131213
  Transmission Date: 20140711
  Serious: Yes (Congenital Anomaly)
  Sender: FDA-Public Use
  Company Number: TN-ABBVIE-13P-160-1179811-00

PATIENT
  Sex: 0

DRUGS (1)
  1. VALPROIC ACID [Suspect]
     Indication: MATERNAL EXPOSURE TIMING UNSPECIFIED
     Route: 064

REACTIONS (2)
  - Hydronephrosis [Unknown]
  - Foetal exposure during pregnancy [Unknown]
